FAERS Safety Report 25259325 (Version 1)
Quarter: 2025Q2

REPORT INFORMATION
  Report Type: Spontaneous
  Country: US (occurrence: None)
  Receive Date: 20250430
  Receipt Date: 20250430
  Transmission Date: 20250717
  Serious: No
  Sender: FDA-CTU
  Company Number: None

PATIENT
  Age: 80 Year
  Sex: Female
  Weight: 58.51 kg

DRUGS (1)
  1. CILOSTAZOL [Suspect]
     Active Substance: CILOSTAZOL
     Indication: Intermittent claudication
     Dosage: FREQUENCY : TWICE A DAY;?
     Route: 048
     Dates: start: 20250423, end: 20250425

REACTIONS (3)
  - Intermittent claudication [None]
  - Paradoxical drug reaction [None]
  - Pain [None]

NARRATIVE: CASE EVENT DATE: 20250423
